FAERS Safety Report 20245794 (Version 1)
Quarter: 2021Q4

REPORT INFORMATION
  Report Type: Spontaneous
  Country: FR (occurrence: FR)
  Receive Date: 20211229
  Receipt Date: 20211229
  Transmission Date: 20220303
  Serious: Yes (Hospitalization)
  Sender: FDA-Public Use
  Company Number: None

PATIENT
  Age: 59 Year
  Sex: Male
  Weight: 75 kg

DRUGS (2)
  1. VALIUM [Suspect]
     Active Substance: DIAZEPAM
     Indication: Product used for unknown indication
     Dosage: 40MG PER DAY OR 10MG / TAKEN 4 TIMES PER DAY
     Route: 048
  2. TRAMADOL HYDROCHLORIDE [Suspect]
     Active Substance: TRAMADOL HYDROCHLORIDE
     Indication: Product used for unknown indication
     Dosage: UNSPECIFIED
     Route: 048
     Dates: start: 2019

REACTIONS (4)
  - Drug dependence [Recovering/Resolving]
  - Intentional product misuse [Unknown]
  - Gait disturbance [Not Recovered/Not Resolved]
  - Fall [Unknown]
